FAERS Safety Report 7156393-8 (Version None)
Quarter: 2010Q4

REPORT INFORMATION
  Report Type: 
  Country: None (occurrence: None)
  Receive Date: 20101214
  Receipt Date: 20101206
  Transmission Date: 20110411
  Serious: Yes (Other)
  Sender: FDA-Public Use
  Company Number: TW-ROCHE-739031

PATIENT
  Age: 63 Year
  Sex: Male

DRUGS (1)
  1. MIRCERA [Suspect]
     Route: 058
     Dates: start: 20100701, end: 20101101

REACTIONS (1)
  - IRON DEFICIENCY ANAEMIA [None]
